FAERS Safety Report 7796577-9 (Version None)
Quarter: 2011Q4

REPORT INFORMATION
  Report Type: 
  Country: None (occurrence: None)
  Receive Date: 20111005
  Receipt Date: 20111003
  Transmission Date: 20120403
  Serious: Yes (Other)
  Sender: FDA-Public Use
  Company Number: JP-PFIZER INC-2011214559

PATIENT
  Age: 70 Year
  Sex: Male

DRUGS (3)
  1. THEOPHYLLINE [Concomitant]
     Dosage: UNK
  2. SOLU-CORTEF [Suspect]
     Dosage: 300 MG, 1X/DAY
     Route: 042
     Dates: start: 20110906, end: 20110911
  3. NEOPHYLLIN [Concomitant]
     Dosage: UNK

REACTIONS (1)
  - HALLUCINATION [None]
